FAERS Safety Report 24057666 (Version 2)
Quarter: 2024Q3

REPORT INFORMATION
  Report Type: Spontaneous
  Country: IL (occurrence: IL)
  Receive Date: 20240706
  Receipt Date: 20240723
  Transmission Date: 20241017
  Serious: Yes (Other)
  Sender: TEVA
  Company Number: IL-TEVA-VS-3215301

PATIENT
  Age: 27 Year
  Sex: Male

DRUGS (4)
  1. METFORMIN [Suspect]
     Active Substance: METFORMIN HYDROCHLORIDE
     Indication: Diabetes mellitus
     Route: 065
  2. PIOGLITAZONE [Suspect]
     Active Substance: PIOGLITAZONE
     Indication: Diabetes mellitus
     Route: 065
  3. LIRAGLUTIDE [Suspect]
     Active Substance: LIRAGLUTIDE
     Indication: Diabetes mellitus
     Route: 065
  4. INSULIN NOS [Suspect]
     Active Substance: INSULIN NOS
     Indication: Diabetes mellitus
     Dosage: BASAL BOLUS;  160-200?UNITS
     Route: 065

REACTIONS (2)
  - Abdominal discomfort [Unknown]
  - Drug ineffective [Unknown]
